FAERS Safety Report 21409560 (Version 1)
Quarter: 2022Q4

REPORT INFORMATION
  Report Type: Spontaneous
  Country: US (occurrence: None)
  Receive Date: 20221003
  Receipt Date: 20221003
  Transmission Date: 20230112
  Serious: Yes (Death, Hospitalization)
  Sender: FDA-Public Use
  Company Number: None

PATIENT
  Age: 88 Year
  Sex: Male
  Weight: 29.48 kg

DRUGS (12)
  1. ENZALUTAMIDE [Suspect]
     Active Substance: ENZALUTAMIDE
  2. DUTASTERIDE [Suspect]
     Active Substance: DUTASTERIDE
  3. CYANOCOBALAMIN [Concomitant]
     Active Substance: CYANOCOBALAMIN
  4. ZINC [Concomitant]
     Active Substance: ZINC
  5. VITAMIN D NOS [Concomitant]
     Active Substance: VITAMIN D NOS
  6. ASCORBIC ACID [Concomitant]
  7. DUTASTERIDE [Concomitant]
     Active Substance: DUTASTERIDE
  8. POLYETHYLENE GLYCOL [Concomitant]
  9. TAMSULOSIN [Concomitant]
  10. COMPOUNDED DITIAZEM-LIDOCAINE [Concomitant]
  11. ZINC [Concomitant]
  12. CYANOCOBALAMIN [Concomitant]
     Active Substance: CYANOCOBALAMIN

REACTIONS (13)
  - Pollakiuria [None]
  - Asthenia [None]
  - Urinary incontinence [None]
  - Loss of personal independence in daily activities [None]
  - Malaise [None]
  - Leukocytosis [None]
  - Urine analysis abnormal [None]
  - Urinary tract infection [None]
  - Sepsis [None]
  - Condition aggravated [None]
  - Mental disorder [None]
  - Lethargy [None]
  - Lung opacity [None]

NARRATIVE: CASE EVENT DATE: 20220927
